FAERS Safety Report 10862116 (Version 3)
Quarter: 2015Q4

REPORT INFORMATION
  Report Type: Spontaneous
  Country: US (occurrence: US)
  Receive Date: 20150224
  Receipt Date: 20151009
  Transmission Date: 20160304
  Serious: Yes (Hospitalization)
  Sender: FDA-Public Use
  Company Number: US-BAYER-2015-025716

PATIENT
  Age: 24 Year
  Sex: Female
  Weight: 83.45 kg

DRUGS (3)
  1. MICRONOR [Concomitant]
     Active Substance: NORETHINDRONE
  2. MIRENA [Suspect]
     Active Substance: LEVONORGESTREL
     Indication: CONTRACEPTION
     Dosage: 20 MCG/24HR, CONT
     Route: 015
     Dates: start: 20130215, end: 20130307
  3. PRENATAL VITAMINS [Concomitant]
     Active Substance: VITAMINS

REACTIONS (9)
  - Post abortion complication [None]
  - Device dislocation [None]
  - Maternal exposure before pregnancy [None]
  - Device issue [None]
  - Abortion spontaneous [None]
  - Injury [None]
  - Infertility female [None]
  - Pain [None]
  - Uterine perforation [None]

NARRATIVE: CASE EVENT DATE: 20130220
